FAERS Safety Report 20405743 (Version 1)
Quarter: 2022Q1

REPORT INFORMATION
  Report Type: Spontaneous
  Country: US (occurrence: US)
  Receive Date: 20220131
  Receipt Date: 20220131
  Transmission Date: 20220423
  Serious: Yes (Hospitalization)
  Sender: FDA-Public Use
  Company Number: US-MYLANLABS-2022M1009628

PATIENT
  Age: 27 Year
  Sex: Female
  Weight: 76.3 kg

DRUGS (17)
  1. ACETAMINOPHEN [Suspect]
     Active Substance: ACETAMINOPHEN
     Indication: Abdominal pain
     Dosage: UNK
     Route: 065
  2. ACETAMINOPHEN [Suspect]
     Active Substance: ACETAMINOPHEN
     Indication: Analgesic therapy
  3. GABAPENTIN [Suspect]
     Active Substance: GABAPENTIN
     Indication: Abdominal pain
     Dosage: UNK
     Route: 065
  4. GABAPENTIN [Suspect]
     Active Substance: GABAPENTIN
     Indication: Analgesic therapy
  5. KETOROLAC [Suspect]
     Active Substance: KETOROLAC TROMETHAMINE
     Indication: Abdominal pain
     Dosage: UNK
     Route: 065
  6. METHOCARBAMOL [Suspect]
     Active Substance: METHOCARBAMOL
     Indication: Abdominal pain
     Dosage: UNK
     Route: 065
  7. HYDROMORPHONE [Suspect]
     Active Substance: HYDROMORPHONE
     Indication: Abdominal pain
     Dosage: UNK
     Route: 065
  8. HYDROMORPHONE [Suspect]
     Active Substance: HYDROMORPHONE
     Indication: Analgesic therapy
  9. DEXMEDETOMIDINE [Concomitant]
     Active Substance: DEXMEDETOMIDINE
     Indication: Abdominal pain
     Dosage: UNK, INFUSION
  10. DEXMEDETOMIDINE [Concomitant]
     Active Substance: DEXMEDETOMIDINE
     Dosage: 1 MICROGRAM/KILOGRAM, QH, INFUSION
  11. VANCOMYCIN [Concomitant]
     Active Substance: VANCOMYCIN
     Indication: Antibiotic therapy
     Dosage: UNK
     Route: 065
  12. PIPERACILLIN AND TAZOBACTAM [Concomitant]
     Active Substance: PIPERACILLIN SODIUM\TAZOBACTAM SODIUM
     Indication: Antibiotic therapy
     Dosage: UNK
     Route: 065
  13. KETAMINE [Concomitant]
     Active Substance: KETAMINE
     Indication: Abdominal pain
     Dosage: UNK, INFUSION
  14. KETAMINE [Concomitant]
     Active Substance: KETAMINE
     Dosage: 0.2 MILLIGRAM/KILOGRAM, QH, MAINTAINED ON A KETAMINE INFUSION (0.2 MG/KG/H), INFUSION
  15. BUPIVACAINE [Concomitant]
     Active Substance: BUPIVACAINE
     Indication: Pain management
     Dosage: 30 MILLILITER, ERECTOR SPINAE PLANE CONTINUOUS CATHETERS, CATHETER
  16. BUPIVACAINE [Concomitant]
     Active Substance: BUPIVACAINE
     Dosage: 2 MILLILITER, AN ADDITIONAL 2 ML OF 0.25% BUPIVACAINE WAS INJECTED THROUGH THE INNER CATHETER ON EAC
  17. ROPIVACAINE [Concomitant]
     Active Substance: ROPIVACAINE
     Indication: Pain management
     Dosage: 8 MILLILITER, QH, AT 8 ML/H ON EACH SIDE USING SEPARATE ELASTOMERIC PUMPS, INFUSION

REACTIONS (1)
  - Drug ineffective [Unknown]
